FAERS Safety Report 7048213 (Version 5)
Quarter: 2015Q2

REPORT INFORMATION
  Report Type: Spontaneous
  Country: US (occurrence: US)
  Receive Date: 20090713
  Receipt Date: 20150529
  Transmission Date: 20150821
  Serious: Yes (Hospitalization, Other)
  Sender: FDA-Public Use
  Company Number: US-BAYER-200925822NA

PATIENT
  Age: 26 Year
  Sex: Female
  Weight: 66 kg

DRUGS (11)
  1. ZOFRAN [Concomitant]
     Active Substance: ONDANSETRON HYDROCHLORIDE
  2. MIRENA [Suspect]
     Active Substance: LEVONORGESTREL
     Indication: CONTRACEPTION
     Dosage: 20 MCG/24HR, CONT
     Route: 015
     Dates: start: 20090130, end: 20130531
  3. ORTHO TRI CYCLEN [Concomitant]
     Active Substance: ETHINYL ESTRADIOL\NORGESTIMATE
  4. PREDNISONE. [Concomitant]
     Active Substance: PREDNISONE
  5. IMITREX [Concomitant]
     Active Substance: SUMATRIPTAN\SUMATRIPTAN SUCCINATE
  6. DICLOFENAC [Concomitant]
     Active Substance: DICLOFENAC
  7. ALBUTEROL. [Concomitant]
     Active Substance: ALBUTEROL
  8. PERCOCET [Concomitant]
     Active Substance: ACETAMINOPHEN\OXYCODONE HYDROCHLORIDE
     Indication: PAIN
  9. MORPHINE [Concomitant]
     Active Substance: MORPHINE
     Indication: PAIN
  10. SUMATRIPTAN. [Concomitant]
     Active Substance: SUMATRIPTAN
  11. VERAMYST [Concomitant]
     Active Substance: FLUTICASONE FUROATE

REACTIONS (17)
  - Vaginal haemorrhage [Unknown]
  - Ectopic pregnancy with contraceptive device [None]
  - Injury [None]
  - Pain [None]
  - Adenomyosis [Unknown]
  - Device expulsion [Recovered/Resolved]
  - Device failure [None]
  - Device dislocation [None]
  - Pelvic congestion [Unknown]
  - Device issue [None]
  - Depression [Not Recovered/Not Resolved]
  - Anxiety [Not Recovered/Not Resolved]
  - Device dislocation [None]
  - Procedural pain [Recovered/Resolved]
  - Abdominal pain lower [Unknown]
  - Drug ineffective [None]
  - Emotional distress [None]

NARRATIVE: CASE EVENT DATE: 2009
